FAERS Safety Report 18228148 (Version 1)
Quarter: 2020Q3

REPORT INFORMATION
  Report Type: Spontaneous
  Country: US (occurrence: US)
  Receive Date: 20200903
  Receipt Date: 20200903
  Transmission Date: 20201103
  Serious: No
  Sender: FDA-Public Use
  Company Number: US-ANIPHARMA-2019-US-023701

PATIENT
  Sex: Female

DRUGS (5)
  1. ARIMIDEX [Suspect]
     Active Substance: ANASTROZOLE
     Indication: BREAST CANCER
     Route: 065
  2. FOSAMAX [Suspect]
     Active Substance: ALENDRONATE SODIUM
     Dosage: UNK
     Route: 065
  3. LUPRON [Suspect]
     Active Substance: LEUPROLIDE ACETATE
     Dosage: UNK
     Route: 065
  4. LEVOTHYROXINE. [Concomitant]
     Active Substance: LEVOTHYROXINE
     Dosage: DAILY
     Route: 065
  5. TAMOXIFEN [Suspect]
     Active Substance: TAMOXIFEN
     Dosage: UNK
     Route: 065

REACTIONS (4)
  - Hepatic pain [Unknown]
  - Osteopenia [Recovered/Resolved]
  - Arthralgia [Unknown]
  - Hepatic cyst [Unknown]

NARRATIVE: CASE EVENT DATE: 2009
